FAERS Safety Report 7008073-7 (Version None)
Quarter: 2010Q3

REPORT INFORMATION
  Report Type: 
  Country: None (occurrence: None)
  Receive Date: 20100920
  Receipt Date: 20100907
  Transmission Date: 20110219
  Serious: Yes (Other)
  Sender: FDA-Public Use
  Company Number: 693586

PATIENT
  Age: 79 Year
  Sex: Female

DRUGS (1)
  1. METHOTREXATE [Suspect]
     Indication: RHEUMATOID ARTHRITIS

REACTIONS (5)
  - HEPATOMEGALY [None]
  - HYPERGAMMAGLOBULINAEMIA [None]
  - LEUKOPENIA [None]
  - SPLENOMEGALY [None]
  - VISCERAL LEISHMANIASIS [None]
